FAERS Safety Report 4754686-2 (Version None)
Quarter: 2005Q3

REPORT INFORMATION
  Report Type: 
  Country: None (occurrence: None)
  Receive Date: 20050829
  Receipt Date: 20050509
  Transmission Date: 20060218
  Serious: Yes (Hospitalization, Disabling)
  Sender: FDA-Public Use
  Company Number: US-MERCK-0505USA01105

PATIENT
  Age: 58 Year
  Sex: Female
  Weight: 81 kg

DRUGS (17)
  1. VIOXX [Suspect]
     Indication: OSTEOARTHRITIS
     Route: 048
     Dates: end: 20020328
  2. VIOXX [Suspect]
     Route: 048
     Dates: start: 20020101, end: 20020715
  3. VIOXX [Suspect]
     Route: 048
     Dates: start: 20020101, end: 20040707
  4. VIOXX [Suspect]
     Indication: BACK PAIN
     Route: 048
     Dates: end: 20020328
  5. VIOXX [Suspect]
     Route: 048
     Dates: start: 20020101, end: 20020715
  6. VIOXX [Suspect]
     Route: 048
     Dates: start: 20020101, end: 20040707
  7. PREMARIN [Concomitant]
     Indication: HORMONE REPLACEMENT THERAPY
     Route: 065
     Dates: start: 19640101
  8. HYDROCHLOROTHIAZIDE [Concomitant]
     Route: 065
     Dates: start: 20021104
  9. HYDROCHLOROTHIAZIDE [Concomitant]
     Route: 065
     Dates: start: 20021111
  10. LEVSIN [Concomitant]
     Route: 065
  11. PRILOSEC [Concomitant]
     Route: 065
  12. PROZAC [Concomitant]
     Route: 065
  13. PROZAC [Concomitant]
     Route: 065
     Dates: start: 20020715
  14. MICROZIDE [Concomitant]
     Route: 065
  15. VICODIN [Concomitant]
     Route: 065
  16. REMERON [Concomitant]
     Route: 065
  17. ALBUTEROL [Concomitant]
     Route: 065

REACTIONS (35)
  - ABDOMINAL PAIN UPPER [None]
  - ACUTE MYOCARDIAL INFARCTION [None]
  - ANGIONEUROTIC OEDEMA [None]
  - ANXIETY [None]
  - ARTHROPOD BITE [None]
  - BORDERLINE PERSONALITY DISORDER [None]
  - CAROTID BRUIT [None]
  - CHEST PAIN [None]
  - CONSTIPATION [None]
  - COORDINATION ABNORMAL [None]
  - CORONARY ARTERY DISEASE [None]
  - DERMATITIS CONTACT [None]
  - DRUG INEFFECTIVE [None]
  - DRY MOUTH [None]
  - DYSPEPSIA [None]
  - DYSPNOEA [None]
  - EXFOLIATIVE RASH [None]
  - FLANK PAIN [None]
  - HYPERLIPIDAEMIA [None]
  - HYPERTENSION [None]
  - HYPOTHYROIDISM [None]
  - IRITIS [None]
  - NAUSEA [None]
  - NOCTURIA [None]
  - NON-CARDIAC CHEST PAIN [None]
  - OEDEMA PERIPHERAL [None]
  - ORAL DISCOMFORT [None]
  - RENAL FAILURE [None]
  - SLEEP DISORDER [None]
  - SYSTEMIC LUPUS ERYTHEMATOSUS [None]
  - UPPER RESPIRATORY TRACT CONGESTION [None]
  - URINARY TRACT DISORDER [None]
  - VAGINITIS BACTERIAL [None]
  - VERTIGO [None]
  - VISION BLURRED [None]
